FAERS Safety Report 5930676-9 (Version None)
Quarter: 2008Q4

REPORT INFORMATION
  Report Type: 
  Country: None (occurrence: None)
  Receive Date: 20081024
  Receipt Date: 20081024
  Transmission Date: 20090506
  Serious: Yes (Other)
  Sender: FDA-Public Use
  Company Number: None

PATIENT
  Age: 28 Year
  Sex: Female
  Weight: 68.4932 kg

DRUGS (1)
  1. MIRENA [Suspect]
     Indication: CONTRACEPTION
     Dosage: 1 INTRA-UTERINE
     Route: 015
     Dates: start: 20080423, end: 20080625

REACTIONS (9)
  - ABDOMINAL PAIN LOWER [None]
  - ANOREXIA [None]
  - CONSTIPATION [None]
  - IUCD COMPLICATION [None]
  - MEDICATION ERROR [None]
  - NAUSEA [None]
  - PYREXIA [None]
  - UTERINE RUPTURE [None]
  - VOMITING [None]
